FAERS Safety Report 12924062 (Version 1)
Quarter: 2016Q4

REPORT INFORMATION
  Report Type: Spontaneous
  Country: PE (occurrence: PE)
  Receive Date: 20161109
  Receipt Date: 20161109
  Transmission Date: 20170207
  Serious: Yes (Other)
  Sender: FDA-Public Use
  Company Number: PE-PFIZER INC-2016514178

PATIENT
  Age: 83 Year
  Sex: Female

DRUGS (1)
  1. XALATAN [Suspect]
     Active Substance: LATANOPROST
     Dosage: 1 GTT, DAILY
     Route: 047

REACTIONS (4)
  - Osteoarthritis [Unknown]
  - Blindness [Unknown]
  - Limb deformity [Recovering/Resolving]
  - Labyrinthitis [Unknown]

NARRATIVE: CASE EVENT DATE: 201607
